FAERS Safety Report 25654782 (Version 1)
Quarter: 2025Q3

REPORT INFORMATION
  Report Type: Spontaneous
  Country: JP (occurrence: JP)
  Receive Date: 20250807
  Receipt Date: 20250807
  Transmission Date: 20251020
  Serious: Yes (Life-Threatening, Hospitalization, Other)
  Sender: RANBAXY
  Company Number: JP-SUN PHARMACEUTICAL INDUSTRIES INC-2025R1-521363

PATIENT
  Age: 5 Year
  Sex: Female
  Weight: 11.6 kg

DRUGS (3)
  1. CARBOPLATIN [Suspect]
     Active Substance: CARBOPLATIN
     Indication: Ovarian dysgerminoma stage I
     Route: 065
  2. BLEOMYCIN [Suspect]
     Active Substance: BLEOMYCIN SULFATE
     Indication: Ovarian dysgerminoma stage I
     Route: 065
  3. ETOPOSIDE [Suspect]
     Active Substance: ETOPOSIDE
     Indication: Ovarian dysgerminoma stage I
     Route: 065

REACTIONS (9)
  - Acute hepatic failure [Recovered/Resolved]
  - Venoocclusive liver disease [Recovered/Resolved]
  - Hepatorenal failure [Recovered/Resolved]
  - Hepatic encephalopathy [Recovered/Resolved]
  - Respiratory failure [Recovered/Resolved]
  - Leukopenia [Recovered/Resolved]
  - Myelosuppression [Recovered/Resolved]
  - Pleural effusion [Recovered/Resolved]
  - Coagulopathy [Recovered/Resolved]
